FAERS Safety Report 4446683-1 (Version None)
Quarter: 2004Q3

REPORT INFORMATION
  Report Type: 
  Country: None (occurrence: None)
  Receive Date: 20040902
  Receipt Date: 20040818
  Transmission Date: 20050211
  Serious: Yes (Hospitalization)
  Sender: FDA-Public Use
  Company Number: WAES 0408USA50147

PATIENT
  Age: 67 Year
  Sex: Male
  Weight: 102.9665 kg

DRUGS (5)
  1. VIOXX [Suspect]
     Indication: NEOPLASM PROPHYLAXIS
     Dosage: 25 MG/DAILY/PO
     Route: 048
     Dates: start: 20040416, end: 20040818
  2. ACETAMINOPHEN [Concomitant]
  3. TERAZOSIN HYDROCHLORIDE [Concomitant]
  4. TRIAMCINOLONE [Concomitant]
  5. VITAMIN B COMPLEX CAP [Concomitant]

REACTIONS (5)
  - ANTINUCLEAR ANTIBODY POSITIVE [None]
  - BLOOD ALBUMIN DECREASED [None]
  - BLOOD CREATININE INCREASED [None]
  - HENOCH-SCHONLEIN PURPURA [None]
  - RASH [None]
